FAERS Safety Report 6397772-6 (Version None)
Quarter: 2009Q4

REPORT INFORMATION
  Report Type: 
  Country: None (occurrence: None)
  Receive Date: 20091007
  Receipt Date: 20090929
  Transmission Date: 20100525
  Serious: Yes (Death)
  Sender: FDA-Public Use
  Company Number: 392145

PATIENT
  Sex: Male

DRUGS (1)
  1. PAMIDRONATE DISODIUM (PAMIDRONIC ACID) [Suspect]
     Indication: DRUG USE FOR UNKNOWN INDICATION

REACTIONS (13)
  - ANHEDONIA [None]
  - ANXIETY [None]
  - BONE DISORDER [None]
  - DISCOMFORT [None]
  - DYSPEPSIA [None]
  - EMOTIONAL DISTRESS [None]
  - GENERAL PHYSICAL HEALTH DETERIORATION [None]
  - JAW DISORDER [None]
  - LIFE EXPECTANCY SHORTENED [None]
  - MENTAL DISORDER [None]
  - OSTEONECROSIS [None]
  - PAIN [None]
  - WEIGHT DECREASED [None]
